FAERS Safety Report 5797581-2 (Version None)
Quarter: 2008Q3

REPORT INFORMATION
  Report Type: 
  Country: None (occurrence: None)
  Receive Date: 20080702
  Receipt Date: 20080318
  Transmission Date: 20090109
  Serious: No
  Sender: FDA-Public Use
  Company Number: US-BAYER-200817636NA

PATIENT
  Age: 35 Year
  Sex: Female
  Weight: 111 kg

DRUGS (3)
  1. MIRENA [Suspect]
     Indication: CONTRACEPTION
     Route: 015
     Dates: start: 20051001
  2. ZYRTEC [Concomitant]
  3. NASONEX [Concomitant]

REACTIONS (10)
  - ACNE [None]
  - ALOPECIA [None]
  - AMENORRHOEA [None]
  - BLOOD PRESSURE INCREASED [None]
  - DEPRESSION [None]
  - HEADACHE [None]
  - HIRSUTISM [None]
  - URINARY TRACT INFECTION [None]
  - VAGINAL INFECTION [None]
  - WEIGHT INCREASED [None]
